FAERS Safety Report 5136994-9 (Version None)
Quarter: 2006Q4

REPORT INFORMATION
  Report Type: 
  Country: None (occurrence: None)
  Receive Date: 20061030
  Receipt Date: 20061019
  Transmission Date: 20070319
  Serious: Yes (Hospitalization, Disabling)
  Sender: FDA-Public Use
  Company Number: US-JNJFOC-20060605550

PATIENT
  Sex: Female
  Weight: 77.57 kg

DRUGS (1)
  1. REMICADE [Suspect]
     Indication: RHEUMATOID ARTHRITIS
     Route: 042

REACTIONS (7)
  - INFARCTION [None]
  - NEPHROLITHIASIS [None]
  - RENAL FAILURE ACUTE [None]
  - SEPSIS [None]
  - TRANSIENT ISCHAEMIC ATTACK [None]
  - UROSEPSIS [None]
  - VASCULITIS [None]
